FAERS Safety Report 8436564-0 (Version None)
Quarter: 2012Q2

REPORT INFORMATION
  Report Type: 
  Country: None (occurrence: None)
  Receive Date: 20120614
  Receipt Date: 20120604
  Transmission Date: 20120825
  Serious: No
  Sender: FDA-Public Use
  Company Number: US-ASTRAZENECA-2010SE15406

PATIENT
  Age: 85 Year
  Sex: Female

DRUGS (2)
  1. ATACAND [Suspect]
     Route: 048
  2. ARTHRITIS MEDICATION [Concomitant]

REACTIONS (6)
  - MUSCLE SPASMS [None]
  - JOINT SWELLING [None]
  - MUSCULOSKELETAL DISCOMFORT [None]
  - NERVOUS SYSTEM DISORDER [None]
  - RENAL DISORDER [None]
  - MALAISE [None]
